FAERS Safety Report 6908935-2 (Version None)
Quarter: 2010Q3

REPORT INFORMATION
  Report Type: 
  Country: None (occurrence: None)
  Receive Date: 20100803
  Receipt Date: 20100719
  Transmission Date: 20110219
  Serious: Yes (Hospitalization)
  Sender: FDA-Public Use
  Company Number: AUR-APL-2010-01859

PATIENT
  Age: 55 Year
  Sex: Male

DRUGS (4)
  1. CITALOPRAM HYDROBROMIDE [Suspect]
  2. VERAPAMIL HCL [Concomitant]
  3. ATORVASTATIN [Concomitant]
  4. METAXALONE [Concomitant]

REACTIONS (3)
  - NAUSEA [None]
  - VASCULITIS CEREBRAL [None]
  - VOMITING [None]
